FAERS Safety Report 17683638 (Version 12)
Quarter: 2022Q4

REPORT INFORMATION
  Report Type: Spontaneous
  Country: US (occurrence: US)
  Receive Date: 20200420
  Receipt Date: 20221026
  Transmission Date: 20230112
  Serious: Yes (Hospitalization, Other)
  Sender: FDA-Public Use
  Company Number: US-PERRIGO-19US017030

PATIENT

DRUGS (15)
  1. PREVACID 24 HR [Suspect]
     Active Substance: LANSOPRAZOLE
     Indication: Gastrooesophageal reflux disease
     Dosage: 15 MG
     Route: 065
     Dates: start: 201001, end: 201601
  2. PREVACID 24 HR [Suspect]
     Active Substance: LANSOPRAZOLE
     Indication: Gastrooesophageal reflux disease
  3. NEXIUM [Suspect]
     Active Substance: ESOMEPRAZOLE MAGNESIUM
     Indication: Gastrooesophageal reflux disease
     Dosage: 40 MG, QD
     Route: 065
     Dates: start: 20050222, end: 20090322
  4. NEXIUM [Suspect]
     Active Substance: ESOMEPRAZOLE MAGNESIUM
     Dosage: 40 MG, QD
     Route: 065
     Dates: start: 20110805, end: 20120405
  5. NEXIUM [Suspect]
     Active Substance: ESOMEPRAZOLE MAGNESIUM
     Dosage: 40 MG, QD
     Route: 065
     Dates: start: 20121211, end: 20130211
  6. NEXIUM [Suspect]
     Active Substance: ESOMEPRAZOLE MAGNESIUM
     Dosage: UNK
     Route: 065
     Dates: start: 2012
  7. NEXIUM [Suspect]
     Active Substance: ESOMEPRAZOLE MAGNESIUM
     Dosage: 40 MG, QD
  8. OMEPRAZOLE [Suspect]
     Active Substance: OMEPRAZOLE
     Indication: Gastrooesophageal reflux disease
     Dosage: 40 MG, QD
     Route: 048
     Dates: start: 20090323, end: 20140808
  9. OMEPRAZOLE [Suspect]
     Active Substance: OMEPRAZOLE
     Indication: Flatulence
     Dosage: 40 MG, QD
     Route: 065
     Dates: start: 20090323, end: 20090409
  10. OMEPRAZOLE [Suspect]
     Active Substance: OMEPRAZOLE
     Indication: Dyspepsia
     Dosage: 40 MG, QD
     Route: 065
     Dates: start: 20130405, end: 20140912
  11. OMEPRAZOLE [Suspect]
     Active Substance: OMEPRAZOLE
     Dosage: UNK
     Route: 065
     Dates: start: 20160510
  12. DEXILANT [Suspect]
     Active Substance: DEXLANSOPRAZOLE
     Indication: Gastrooesophageal reflux disease
     Dosage: 30 MG, QD
     Route: 065
     Dates: start: 20100218, end: 20110627
  13. DEXILANT [Suspect]
     Active Substance: DEXLANSOPRAZOLE
     Indication: Gastrooesophageal reflux disease
     Dosage: 60 MG, QD
     Route: 065
  14. PRILOSEC [Suspect]
     Active Substance: OMEPRAZOLE MAGNESIUM
     Indication: Gastrooesophageal reflux disease
     Dosage: 20 MG, QD
     Route: 065
     Dates: start: 19961111, end: 19970929
  15. ESOMEPRAZOLE [Suspect]
     Active Substance: ESOMEPRAZOLE
     Indication: Product used for unknown indication
     Dosage: 40 MG, QD
     Route: 048

REACTIONS (29)
  - Chronic kidney disease [Not Recovered/Not Resolved]
  - End stage renal disease [Not Recovered/Not Resolved]
  - Acute kidney injury [Unknown]
  - Renal failure [Unknown]
  - Congenital cystic kidney disease [Not Recovered/Not Resolved]
  - Renal cell carcinoma [Unknown]
  - Hypertensive nephropathy [Unknown]
  - Renal cancer [Unknown]
  - Nephrectomy [Recovered/Resolved]
  - Renal impairment [Unknown]
  - Papillary renal cell carcinoma [Unknown]
  - Nephrogenic anaemia [Unknown]
  - Chronic kidney disease-mineral and bone disorder [Unknown]
  - Haematuria [Unknown]
  - Nocturia [Unknown]
  - Polyuria [Unknown]
  - Renal cyst [Unknown]
  - Kidney enlargement [Unknown]
  - Renal transplant [Recovered/Resolved]
  - Peritoneal dialysis [Unknown]
  - Essential hypertension [Unknown]
  - Urinary tract infection [Unknown]
  - Dialysis [Not Recovered/Not Resolved]
  - Single functional kidney [Unknown]
  - Renal transplant [Not Recovered/Not Resolved]
  - Chronic kidney disease [Not Recovered/Not Resolved]
  - End stage renal disease [Not Recovered/Not Resolved]
  - Congenital cystic kidney disease [Unknown]
  - Nephrectomy [Not Recovered/Not Resolved]

NARRATIVE: CASE EVENT DATE: 20100210
